FAERS Safety Report 22248067 (Version 1)
Quarter: 2023Q2

REPORT INFORMATION
  Report Type: Spontaneous
  Country: DE (occurrence: DE)
  Receive Date: 20230425
  Receipt Date: 20230425
  Transmission Date: 20230722
  Serious: Yes (Other)
  Sender: FDA-Public Use
  Company Number: DE-ALKEM LABORATORIES LIMITED-DE-ALKEM-2023-02613

PATIENT
  Sex: Male

DRUGS (4)
  1. LACOSAMIDE [Suspect]
     Active Substance: LACOSAMIDE
     Indication: Product used for unknown indication
     Dosage: 400 MILLIGRAMS, QD (EVERY 1 DAY)
     Route: 065
  2. LACOSAMIDE [Suspect]
     Active Substance: LACOSAMIDE
     Dosage: 100 MILLIGRAMS, QD (EVERY 1 DAY)
     Route: 065
  3. LACOSAMIDE [Suspect]
     Active Substance: LACOSAMIDE
     Dosage: 300 MILLIGRAMS, QD (EVERY 1 DAY)
     Route: 065
  4. LACOSAMIDE [Suspect]
     Active Substance: LACOSAMIDE
     Dosage: 200 MILLIGRAMS, QD (EVERY 1 DAY)
     Route: 065

REACTIONS (10)
  - Suicidal ideation [Unknown]
  - Aggression [Unknown]
  - Hyperhidrosis [Unknown]
  - Insomnia [Unknown]
  - Increased appetite [Unknown]
  - Palpitations [Unknown]
  - Tremor [Unknown]
  - Psychomotor hyperactivity [Unknown]
  - Vision blurred [Unknown]
  - Weight decreased [Unknown]
